FAERS Safety Report 16616503 (Version 1)
Quarter: 2019Q3

REPORT INFORMATION
  Report Type: Spontaneous
  Country: US (occurrence: US)
  Receive Date: 20190610
  Receipt Date: 20190610
  Transmission Date: 20191004
  Serious: No
  Sender: FDA-Public Use
  Company Number: None

PATIENT
  Age: 61 Year
  Sex: Female

DRUGS (1)
  1. IBRANCE [Suspect]
     Active Substance: PALBOCICLIB
     Indication: BREAST CANCER
     Dosage: 75MG QD X 21DAYS OFF 7 PO
     Route: 048
     Dates: start: 201807

REACTIONS (1)
  - Lymphoedema [None]

NARRATIVE: CASE EVENT DATE: 201808
